FAERS Safety Report 25628080 (Version 1)
Quarter: 2025Q3

REPORT INFORMATION
  Report Type: Spontaneous
  Country: US (occurrence: US)
  Receive Date: 20250731
  Receipt Date: 20250731
  Transmission Date: 20251021
  Serious: Yes (Other)
  Sender: PFIZER
  Company Number: US-PFIZER INC-PV202500091127

PATIENT
  Age: 65 Year
  Sex: Female

DRUGS (5)
  1. SPIRONOLACTONE [Suspect]
     Active Substance: SPIRONOLACTONE
  2. KEVEYIS [Suspect]
     Active Substance: DICHLORPHENAMIDE
     Indication: Paralysis
     Route: 048
     Dates: start: 20170428
  3. KEVEYIS [Suspect]
     Active Substance: DICHLORPHENAMIDE
     Dosage: 1.5 TABLET, (75 MG), 2X/DAY
     Route: 048
     Dates: start: 20231117
  4. EFFEXOR [Suspect]
     Active Substance: VENLAFAXINE HYDROCHLORIDE
  5. POTASSIUM [Concomitant]
     Active Substance: POTASSIUM

REACTIONS (19)
  - Syncope [Unknown]
  - Blood pressure fluctuation [Unknown]
  - Abdominal discomfort [Unknown]
  - Post concussion syndrome [Unknown]
  - Panic attack [Unknown]
  - Abdominal pain [Recovering/Resolving]
  - Diarrhoea [Recovering/Resolving]
  - Frequent bowel movements [Recovering/Resolving]
  - Hyperhidrosis [Unknown]
  - Hot flush [Unknown]
  - Respiratory disorder [Unknown]
  - Stress [Recovering/Resolving]
  - Mental disorder [Recovering/Resolving]
  - Malaise [Not Recovered/Not Resolved]
  - Decreased appetite [Unknown]
  - Presyncope [Unknown]
  - Influenza like illness [Recovering/Resolving]
  - Nausea [Unknown]
  - Gait disturbance [Unknown]

NARRATIVE: CASE EVENT DATE: 20250603
